FAERS Safety Report 10617599 (Version 7)
Quarter: 2015Q4

REPORT INFORMATION
  Report Type: Report from Study
  Country: US (occurrence: US)
  Receive Date: 20141201
  Receipt Date: 20151118
  Transmission Date: 20160304
  Serious: Yes (Other)
  Sender: FDA-Public Use
  Company Number: US-SA-2014SA112070

PATIENT
  Age: 51 Year
  Sex: Female

DRUGS (6)
  1. AUBAGIO [Suspect]
     Active Substance: TERIFLUNOMIDE
     Indication: PSORIATIC ARTHROPATHY
     Route: 048
     Dates: start: 20140801
  2. ENBREL [Concomitant]
     Active Substance: ETANERCEPT
     Indication: ARTHRITIS
  3. LISINOPRIL. [Concomitant]
     Active Substance: LISINOPRIL
  4. HYDROCHLOROTHIAZIDE. [Concomitant]
     Active Substance: HYDROCHLOROTHIAZIDE
  5. LEXAPRO [Concomitant]
     Active Substance: ESCITALOPRAM OXALATE
  6. AUBAGIO [Suspect]
     Active Substance: TERIFLUNOMIDE
     Indication: MULTIPLE SCLEROSIS
     Route: 048
     Dates: start: 20140801

REACTIONS (16)
  - Alopecia [Recovering/Resolving]
  - Condition aggravated [Unknown]
  - Paraesthesia [Unknown]
  - Blood glucose increased [Unknown]
  - Diarrhoea [Unknown]
  - Poverty of speech [Unknown]
  - Weight increased [Recovering/Resolving]
  - Therapeutic response unexpected [Unknown]
  - Hypoaesthesia [Unknown]
  - Renal failure [Unknown]
  - Fatigue [Unknown]
  - Renal impairment [Unknown]
  - Dyspnoea [Unknown]
  - Depression [Not Recovered/Not Resolved]
  - Intervertebral disc protrusion [Unknown]
  - Product use issue [Unknown]
